FAERS Safety Report 25184883 (Version 1)
Quarter: 2025Q2

REPORT INFORMATION
  Report Type: Spontaneous
  Country: US (occurrence: US)
  Receive Date: 20250410
  Receipt Date: 20250410
  Transmission Date: 20250717
  Serious: Yes (Other)
  Sender: BAYER
  Company Number: US-BAYER-2025A046865

PATIENT

DRUGS (1)
  1. KERENDIA [Suspect]
     Active Substance: FINERENONE
     Indication: Hyperkalaemia

REACTIONS (1)
  - Hyperkalaemia [Unknown]
